FAERS Safety Report 11919724 (Version 1)
Quarter: 2016Q1

REPORT INFORMATION
  Report Type: Spontaneous
  Country: None (occurrence: None)
  Receive Date: 20160114
  Receipt Date: 20160114
  Transmission Date: 20160526
  Serious: No
  Sender: FDA-Public Use
  Company Number: None

PATIENT
  Age: 32 Year
  Sex: Male
  Weight: 65.77 kg

DRUGS (1)
  1. CETAPHIL FACE WASH LIQUID FORM [Suspect]
     Active Substance: COSMETICS
     Indication: ACNE
     Dates: start: 20160111, end: 20160112

REACTIONS (4)
  - Back pain [None]
  - Abdominal pain [None]
  - Dyspnoea [None]
  - Feeling cold [None]

NARRATIVE: CASE EVENT DATE: 20160112
